FAERS Safety Report 15373338 (Version 1)
Quarter: 2018Q3

REPORT INFORMATION
  Report Type: Spontaneous
  Country: DE (occurrence: DE)
  Receive Date: 20180912
  Receipt Date: 20180912
  Transmission Date: 20181010
  Serious: Yes (Other)
  Sender: FDA-Public Use
  Company Number: DE-ABBVIE-18K-062-2475837-00

PATIENT
  Age: 46 Year
  Sex: Female

DRUGS (3)
  1. IBUPROFEN. [Concomitant]
     Active Substance: IBUPROFEN
     Indication: WOUND COMPLICATION
     Dosage: ALTERNATING
     Dates: end: 201807
  2. IBUPROFEN. [Concomitant]
     Active Substance: IBUPROFEN
     Dosage: 4?6 DAILY
     Dates: start: 201807
  3. HUMIRA [Suspect]
     Active Substance: ADALIMUMAB
     Indication: HIDRADENITIS
     Route: 058
     Dates: start: 20180517

REACTIONS (15)
  - Wound complication [Unknown]
  - Wound [Unknown]
  - Oesophagitis [Unknown]
  - Wound infection [Unknown]
  - Alcaligenes infection [Unknown]
  - Groin pain [Not Recovered/Not Resolved]
  - Gastric ulcer [Unknown]
  - Gastritis [Unknown]
  - Skin bacterial infection [Unknown]
  - Wound dehiscence [Unknown]
  - Beta haemolytic streptococcal infection [Unknown]
  - Erysipelas [Not Recovered/Not Resolved]
  - Abdominal pain lower [Not Recovered/Not Resolved]
  - Eye irritation [Unknown]
  - Bacterial infection [Unknown]

NARRATIVE: CASE EVENT DATE: 2018
